FAERS Safety Report 15653264 (Version 1)
Quarter: 2018Q4

REPORT INFORMATION
  Report Type: Spontaneous
  Country: US (occurrence: US)
  Receive Date: 20181123
  Receipt Date: 20181123
  Transmission Date: 20190205
  Serious: Yes (Other)
  Sender: FDA-Public Use
  Company Number: US-HERITAGE PHARMACEUTICALS-2017HTG00380

PATIENT
  Age: 60 Year
  Sex: Female
  Weight: 65.31 kg

DRUGS (7)
  1. ISOSORBIDE. [Concomitant]
     Active Substance: ISOSORBIDE
     Dosage: 180 MG, 2X/DAY
  2. UNSPECIFIED MEDICATIONS [Concomitant]
     Active Substance: UNSPECIFIED INGREDIENT
  3. NITRO DUR PATCH [Concomitant]
     Dosage: 0.8 MG, 1X/DAY ON AT 0600 AND OFF AT 1800
     Route: 062
  4. HYDRALAZINE HYDROCHLORIDE. [Suspect]
     Active Substance: HYDRALAZINE HYDROCHLORIDE
     Indication: HYPERTENSION
     Dosage: 25 MG, UNK
     Route: 048
     Dates: start: 20171223, end: 20171223
  5. DILTIAZEM. [Concomitant]
     Active Substance: DILTIAZEM
     Dosage: 30 MG, 2X/DAY
  6. DILTIAZEM. [Concomitant]
     Active Substance: DILTIAZEM
     Dosage: 30 MG, AS NEEDED
  7. DILTIAZEM LONG ACTING [Concomitant]
     Dosage: 240 MG, 2X/DAY

REACTIONS (8)
  - Panic reaction [Recovering/Resolving]
  - Blood pressure fluctuation [Unknown]
  - Palpitations [Recovered/Resolved]
  - Hypersensitivity [Recovered/Resolved]
  - Urticaria [Recovered/Resolved]
  - Hypertension [Unknown]
  - Tachyarrhythmia [Recovering/Resolving]
  - Dyspnoea [Recovered/Resolved]

NARRATIVE: CASE EVENT DATE: 20171223
